FAERS Safety Report 19941126 (Version 1)
Quarter: 2021Q4

REPORT INFORMATION
  Report Type: Spontaneous
  Country: ES (occurrence: ES)
  Receive Date: 20211012
  Receipt Date: 20211012
  Transmission Date: 20220304
  Serious: Yes (Hospitalization, Other)
  Sender: FDA-Public Use
  Company Number: ES-SUN PHARMACEUTICAL INDUSTRIES LTD-2021RR-313971

PATIENT
  Age: 49 Year
  Sex: Female

DRUGS (6)
  1. LETROZOLE [Suspect]
     Active Substance: LETROZOLE
     Indication: Breast cancer metastatic
     Dosage: 2.5 MILLIGRAM, DAILY
     Route: 048
     Dates: start: 20210529
  2. ZOLEDRONIC ACID [Suspect]
     Active Substance: ZOLEDRONIC ACID
     Indication: Breast cancer metastatic
     Dosage: 4 MILLIGRAM (EVERY 28 DAYS)
     Route: 042
     Dates: start: 201905
  3. CALCIUM CARBONATE\CHOLECALCIFEROL [Suspect]
     Active Substance: CALCIUM CARBONATE\CHOLECALCIFEROL
     Indication: Breast cancer metastatic
     Dosage: UNK
     Route: 048
     Dates: start: 201905
  4. PALBOCICLIB [Suspect]
     Active Substance: PALBOCICLIB
     Indication: Breast cancer metastatic
     Dosage: 125 MILLIGRAM (EVERY 24H, 21-28D)
     Route: 048
     Dates: start: 201905
  5. GOSERELIN [Suspect]
     Active Substance: GOSERELIN
     Indication: Breast cancer metastatic
     Dosage: 3.6 MILLIGRAM, EVERY 28 DAYS
     Route: 058
     Dates: start: 201905
  6. LEVOTHYROXINE SODIUM [Concomitant]
     Active Substance: LEVOTHYROXINE SODIUM
     Indication: Product used for unknown indication
     Dosage: UNK
     Route: 065

REACTIONS (12)
  - Pain [Recovered/Resolved]
  - Asthenia [Recovered/Resolved]
  - Upper respiratory tract infection [Unknown]
  - Pulmonary embolism [Recovered/Resolved]
  - Neutropenia [Recovered/Resolved]
  - Arthralgia [Unknown]
  - Anal fissure [Unknown]
  - Injury [Unknown]
  - Fall [Unknown]
  - COVID-19 [Unknown]
  - Constipation [Unknown]
  - Contusion [Unknown]
